FAERS Safety Report 9795105 (Version 1)
Quarter: 2014Q1

REPORT INFORMATION
  Report Type: Spontaneous
  Country: AU (occurrence: AU)
  Receive Date: 20140103
  Receipt Date: 20140103
  Transmission Date: 20141002
  Serious: Yes (Disabling)
  Sender: FDA-Public Use
  Company Number: AU-ROCHE-1325005

PATIENT
  Age: 59 Year
  Sex: Male

DRUGS (8)
  1. VEMURAFENIB [Suspect]
     Indication: PRODUCT USED FOR UNKNOWN INDICATION
     Route: 065
     Dates: start: 20130219, end: 201308
  2. FLUCONAZOLE [Suspect]
     Indication: PRODUCT USED FOR UNKNOWN INDICATION
     Route: 065
     Dates: start: 201304, end: 201305
  3. FLUCONAZOLE [Suspect]
     Route: 065
     Dates: start: 201306, end: 201307
  4. MELOXICAM [Suspect]
     Indication: PRODUCT USED FOR UNKNOWN INDICATION
     Route: 065
     Dates: start: 201306, end: 201307
  5. NILSTAT (AUSTRALIA) [Concomitant]
     Route: 065
     Dates: start: 201304, end: 201305
  6. NILSTAT (AUSTRALIA) [Concomitant]
     Route: 065
     Dates: start: 201306, end: 201307
  7. AMPHOTERICIN [Concomitant]
     Route: 065
     Dates: start: 201306, end: 201307
  8. CRESTOR [Concomitant]
     Indication: BLOOD CHOLESTEROL INCREASED
     Route: 065

REACTIONS (5)
  - Tinnitus [Not Recovered/Not Resolved]
  - Deafness unilateral [Not Recovered/Not Resolved]
  - Arthralgia [Unknown]
  - Lethargy [Unknown]
  - Hepatitis [Unknown]
